FAERS Safety Report 7360451-2 (Version None)
Quarter: 2011Q1

REPORT INFORMATION
  Report Type: 
  Country: None (occurrence: None)
  Receive Date: 20110318
  Receipt Date: 20110309
  Transmission Date: 20110831
  Serious: Yes (Hospitalization, Other)
  Sender: FDA-Public Use
  Company Number: US-BAYER-201041977NA

PATIENT
  Age: 25 Year
  Sex: Female
  Weight: 125 kg

DRUGS (6)
  1. YAZ [Suspect]
     Indication: PREMENSTRUAL SYNDROME
  2. YAZ [Suspect]
     Indication: ACNE
     Dosage: UNK
     Route: 048
     Dates: start: 20100804, end: 20101113
  3. AZITHROMYCIN [Concomitant]
     Indication: BRONCHITIS
     Dates: start: 20101101
  4. PREDNISONE TAB [Concomitant]
     Indication: BRONCHITIS
     Dates: start: 20101101
  5. YAZ [Suspect]
     Indication: ORAL CONTRACEPTION
  6. VALTREX [Concomitant]

REACTIONS (3)
  - COUGH [None]
  - CHEST PAIN [None]
  - PULMONARY EMBOLISM [None]
